FAERS Safety Report 23277431 (Version 1)
Quarter: 2023Q4

REPORT INFORMATION
  Report Type: Spontaneous
  Country: US (occurrence: None)
  Receive Date: 20231208
  Receipt Date: 20231208
  Transmission Date: 20240110
  Serious: Yes (Hospitalization)
  Sender: FDA-Public Use
  Company Number: None

PATIENT
  Age: 30 Year
  Sex: Female
  Weight: 94.8 kg

DRUGS (1)
  1. DENOSUMAB [Suspect]
     Active Substance: DENOSUMAB
     Dates: end: 20230519

REACTIONS (4)
  - Abdominal discomfort [None]
  - Cervical dilatation [None]
  - Threatened labour [None]
  - Exposure during pregnancy [None]

NARRATIVE: CASE EVENT DATE: 20231128
